FAERS Safety Report 6095973-8 (Version None)
Quarter: 2009Q1

REPORT INFORMATION
  Report Type: 
  Country: None (occurrence: None)
  Receive Date: 20090227
  Receipt Date: 20080729
  Transmission Date: 20090719
  Serious: No
  Sender: FDA-Public Use
  Company Number: A0739889A

PATIENT
  Age: 45 Year
  Sex: Female

DRUGS (1)
  1. LAMICTAL [Suspect]
     Indication: CLUSTER HEADACHE
     Dosage: 100MG TWICE PER DAY
     Route: 048
     Dates: start: 20071001

REACTIONS (5)
  - DYSMENORRHOEA [None]
  - HEAD TITUBATION [None]
  - MENORRHAGIA [None]
  - MENSTRUAL DISORDER [None]
  - POLYMENORRHOEA [None]
